FAERS Safety Report 16810743 (Version 1)
Quarter: 2019Q3

REPORT INFORMATION
  Report Type: Spontaneous
  Country: FR (occurrence: FR)
  Receive Date: 20190916
  Receipt Date: 20190916
  Transmission Date: 20191005
  Serious: Yes (Other)
  Sender: FDA-Public Use
  Company Number: FR-PFIZER INC-2019392494

PATIENT
  Sex: Female

DRUGS (2)
  1. FLUCONAZOLE BIOGARAN [Suspect]
     Active Substance: FLUCONAZOLE
     Indication: ORAL FUNGAL INFECTION
     Dosage: UNK
     Route: 048
  2. TRIFLUCAN [Suspect]
     Active Substance: FLUCONAZOLE
     Indication: ORAL FUNGAL INFECTION
     Dosage: UNK
     Route: 048

REACTIONS (2)
  - Burn oral cavity [Not Recovered/Not Resolved]
  - Pain [Not Recovered/Not Resolved]
